FAERS Safety Report 10948542 (Version 1)
Quarter: 2015Q1

REPORT INFORMATION
  Report Type: Spontaneous
  Country: GB (occurrence: GB)
  Receive Date: 20150324
  Receipt Date: 20150324
  Transmission Date: 20150721
  Serious: Yes (Other)
  Sender: FDA-Public Use
  Company Number: GB-TEVA-548237ACC

PATIENT
  Age: 61 Year
  Sex: Female
  Weight: 62 kg

DRUGS (11)
  1. ADCAL-D3 [Concomitant]
     Active Substance: CALCIUM CARBONATE\CHOLECALCIFEROL
  2. DOMPERIDONE [Concomitant]
     Active Substance: DOMPERIDONE
  3. FOLIC ACID. [Concomitant]
     Active Substance: FOLIC ACID
  4. PREDNISOLONE. [Concomitant]
     Active Substance: PREDNISOLONE
     Indication: POLYMYALGIA RHEUMATICA
     Dosage: 4.5 MILLIGRAM DAILY; 4.5MG DAILY WHICH DECREASED SLOWLY TO NIL BEWEEN OCTOBER AND DECEMBER
     Dates: start: 200408, end: 201412
  5. AMITRIPTYLINE [Concomitant]
     Active Substance: AMITRIPTYLINE
  6. CLIMAGEST [Concomitant]
     Active Substance: ESTRADIOL VALERATE\NORETHINDRONE ACETATE
  7. SOLIFENACIN [Concomitant]
     Active Substance: SOLIFENACIN
  8. METHOTREXATE [Suspect]
     Active Substance: METHOTREXATE
     Indication: POLYMYALGIA RHEUMATICA
     Dosage: STARTED 7.5MG WEEKLY, INCREASING TO 15MG WEEKLY
     Dates: end: 20150101
  9. RANITIDINE [Concomitant]
     Active Substance: RANITIDINE\RANITIDINE HYDROCHLORIDE
  10. NAPROXEN. [Concomitant]
     Active Substance: NAPROXEN
  11. METHOTREXATE [Suspect]
     Active Substance: METHOTREXATE
     Indication: POLYMYALGIA RHEUMATICA
     Dosage: STARTED 7.5MG WEEKLY, INCREASING TO 15MG WEEKLY
     Dates: start: 20141016

REACTIONS (5)
  - Skin discolouration [Unknown]
  - Peripheral coldness [Recovering/Resolving]
  - Chillblains [Recovering/Resolving]
  - Skin necrosis [Recovering/Resolving]
  - Asthenia [Recovering/Resolving]

NARRATIVE: CASE EVENT DATE: 201412
